FAERS Safety Report 4559572-9 (Version None)
Quarter: 2005Q1

REPORT INFORMATION
  Report Type: 
  Country: None (occurrence: None)
  Receive Date: 20050119
  Receipt Date: 20050104
  Transmission Date: 20050727
  Serious: Yes (Death, Other)
  Sender: FDA-Public Use
  Company Number: A-CH2003-03573

PATIENT
  Age: 52 Year
  Sex: Male

DRUGS (15)
  1. TRACLEER [Suspect]
     Indication: PULMONARY HYPERTENSION
     Dosage: SEE IMAGE, ORAL
     Route: 048
     Dates: start: 20030225, end: 20030324
  2. TRACLEER [Suspect]
     Indication: PULMONARY HYPERTENSION
     Dosage: SEE IMAGE, ORAL
     Route: 048
     Dates: start: 20030325, end: 20030922
  3. TRACLEER [Suspect]
     Indication: PULMONARY HYPERTENSION
     Dosage: SEE IMAGE, ORAL
     Route: 048
     Dates: start: 20031117, end: 20041118
  4. ALCOHOL (ETHANOL) [Suspect]
  5. MARCUMAR [Concomitant]
  6. ISOSORBIDE DINITRATE [Concomitant]
  7. DILZEM TWICE DAILY (DILTIAZEM HYDROCHLORIDE) [Concomitant]
  8. FUROSEMIDE [Concomitant]
  9. CAPTOPRIL [Concomitant]
  10. PANTOZOL (PANTOPRAZOLE SODIUM) [Concomitant]
  11. KALINOR (POTASSIUM CHLORIDE) [Concomitant]
  12. SPIRONOLACTONE [Concomitant]
  13. LACTULOSE [Concomitant]
  14. ATOSIL (ISOPROMETHAZINE HYDROCHLORIDE) [Concomitant]
  15. ACETYLSALICYLIC ACID SRT [Concomitant]

REACTIONS (9)
  - ALCOHOLISM [None]
  - BLOOD ALKALINE PHOSPHATASE INCREASED [None]
  - BLOOD BILIRUBIN INCREASED [None]
  - EXERCISE TOLERANCE DECREASED [None]
  - GAMMA-GLUTAMYLTRANSFERASE INCREASED [None]
  - HEPATIC FAILURE [None]
  - LIVER FUNCTION TEST ABNORMAL [None]
  - OCULAR ICTERUS [None]
  - ROAD TRAFFIC ACCIDENT [None]
